FAERS Safety Report 8641753 (Version 3)
Quarter: 2012Q4

REPORT INFORMATION
  Report Type: 
  Country: US (occurrence: US)
  Receive Date: 20120628
  Receipt Date: 20121119
  Transmission Date: 20130627
  Serious: No
  Sender: FDA-Public Use
  Company Number: US-PFIZER INC-2012152280

PATIENT
  Age: 19 Year
  Sex: Male
  Weight: 81.63 kg

DRUGS (7)
  1. GENOTROPIN [Suspect]
     Indication: PITUITARY DWARFISM
     Dosage: 4 mg, 1x/day
     Route: 058
     Dates: start: 20120604
  2. ABILIFY [Concomitant]
     Dosage: UNK
     Dates: start: 20111108
  3. ALBUTEROL [Concomitant]
     Dosage: UNK
     Dates: start: 20111108
  4. CONCERTA [Concomitant]
     Dosage: UNK
     Dates: start: 20111108
  5. NEXIUM [Concomitant]
     Dosage: UNK
     Dates: start: 20111108
  6. CYMBALTA [Concomitant]
     Dosage: UNK
     Dates: start: 20111108
  7. RITALIN [Concomitant]
     Dosage: UNK
     Dates: start: 20111108

REACTIONS (3)
  - Injection site pain [Unknown]
  - Fluid retention [Unknown]
  - Oedema [Recovered/Resolved]
